FAERS Safety Report 6657914-1 (Version None)
Quarter: 2010Q1

REPORT INFORMATION
  Report Type: 
  Country: None (occurrence: None)
  Receive Date: 20100330
  Receipt Date: 20100322
  Transmission Date: 20100710
  Serious: Yes (Death)
  Sender: FDA-Public Use
  Company Number: NL-ROCHE-693251

PATIENT
  Sex: Male

DRUGS (1)
  1. XELODA [Suspect]
     Dosage: DOSE FORM, ROUTE AND FREQUENCY NOT PROVIDED.
     Route: 065

REACTIONS (1)
  - PNEUMONIA ASPIRATION [None]
